FAERS Safety Report 6206824-2 (Version None)
Quarter: 2009Q2

REPORT INFORMATION
  Report Type: 
  Country: None (occurrence: None)
  Receive Date: 20090528
  Receipt Date: 20090522
  Transmission Date: 20091009
  Serious: Yes (Hospitalization, Other)
  Sender: FDA-Public Use
  Company Number: AU-NOVOPROD-287511

PATIENT
  Age: 86 Year
  Sex: Female

DRUGS (3)
  1. NOVOLOG [Suspect]
     Indication: INSULIN-REQUIRING TYPE 2 DIABETES MELLITUS
     Dosage: 6 IU, BID
     Dates: start: 20081215, end: 20090501
  2. LANTUS [Concomitant]
     Dosage: 24 IU, QD
  3. PANAMAX [Concomitant]
     Dosage: 8 TAB, QD

REACTIONS (2)
  - CEREBROVASCULAR ACCIDENT [None]
  - HYPOGLYCAEMIC UNCONSCIOUSNESS [None]
